FAERS Safety Report 6558709-X (Version None)
Quarter: 2010Q1

REPORT INFORMATION
  Report Type: 
  Country: None (occurrence: None)
  Receive Date: 20100129
  Receipt Date: 20091230
  Transmission Date: 20100710
  Serious: Yes (Hospitalization)
  Sender: FDA-Public Use
  Company Number: SK-PFIZER INC-2010002475

PATIENT
  Age: 66 Year
  Sex: Male
  Weight: 64.6 kg

DRUGS (9)
  1. HYDROCORTISONE AND HYDROCORTISONE ACETATE AND HYDROCORTISONE CIPIONATE [Suspect]
     Dosage: UNK
     Dates: start: 20091001
  2. TEMSIROLIMUS [Suspect]
     Indication: METASTATIC RENAL CELL CARCINOMA
     Dosage: 15 MG, WEEKLY
     Route: 042
     Dates: start: 20091212
  3. BEVACIZUMAB [Suspect]
     Indication: METASTATIC RENAL CELL CARCINOMA
     Dosage: 10 MG/KG, UNK
     Dates: start: 20091212
  4. VITACALCIN [Suspect]
     Indication: OSTEOPOROSIS
     Dosage: UNK
     Dates: start: 20081023
  5. LOKREN [Concomitant]
     Indication: HYPERTENSION
     Dosage: UNK
  6. MONOSAN [Concomitant]
     Indication: HYPERTENSION
     Dosage: UNK
  7. PERINDOPRIL [Concomitant]
     Indication: HYPERTENSION
     Dosage: UNK
     Dates: start: 20081023
  8. ANOPYRIN [Concomitant]
     Indication: PROPHYLAXIS
     Dosage: UNK
  9. SIMVASTATIN [Concomitant]
     Indication: DYSLIPIDAEMIA
     Dosage: UNK
     Dates: start: 19990101

REACTIONS (1)
  - HYPONATRAEMIA [None]
